FAERS Safety Report 4924681-9 (Version None)
Quarter: 2006Q1

REPORT INFORMATION
  Report Type: 
  Country: None (occurrence: None)
  Receive Date: 20060222
  Receipt Date: 20060210
  Transmission Date: 20060701
  Serious: Yes (Other)
  Sender: FDA-Public Use
  Company Number: 2006BH002941

PATIENT
  Sex: Female

DRUGS (1)
  1. VINORELBINE TARTRATE [Suspect]
     Indication: BREAST CANCER METASTATIC
     Dosage: 30 MG/M**2; IV
     Route: 042

REACTIONS (2)
  - HAEMATOTOXICITY [None]
  - NEUTROPENIA [None]
